FAERS Safety Report 17616716 (Version 1)
Quarter: 2020Q2

REPORT INFORMATION
  Report Type: Spontaneous
  Country: US (occurrence: US)
  Receive Date: 20200401
  Receipt Date: 20200401
  Transmission Date: 20200713
  Serious: Yes (Death)
  Sender: FDA-Public Use
  Company Number: None

PATIENT
  Age: 3 Year
  Sex: Male

DRUGS (9)
  1. TOPIRAMATE. [Concomitant]
     Active Substance: TOPIRAMATE
  2. LEVETIRACETAM. [Concomitant]
     Active Substance: LEVETIRACETAM
  3. BENEFIBER [Concomitant]
     Active Substance: STARCH, WHEAT
  4. FAMOTIDINE. [Concomitant]
     Active Substance: FAMOTIDINE
  5. VIGABATRIN 500MG POWDER PKG [Suspect]
     Active Substance: VIGABATRIN
     Indication: EPILEPSY
     Dosage: ?          OTHER ROUTE:VIA G TUBE?
     Dates: start: 20200115, end: 20200327
  6. DAILY-VITE TAB [Concomitant]
  7. GLYCERIN SUPOSITORY [Concomitant]
  8. PHENOBARBITOL [Concomitant]
  9. VIMPAT [Concomitant]
     Active Substance: LACOSAMIDE

REACTIONS (1)
  - Death [None]

NARRATIVE: CASE EVENT DATE: 20200327
